FAERS Safety Report 10314189 (Version 1)
Quarter: 2014Q3

REPORT INFORMATION
  Report Type: Spontaneous
  Country: FR (occurrence: FR)
  Receive Date: 20140718
  Receipt Date: 20140718
  Transmission Date: 20150326
  Serious: Yes (Hospitalization)
  Sender: FDA-Public Use
  Company Number: FR-BRISTOL-MYERS SQUIBB COMPANY-21199476

PATIENT
  Age: 75 Year
  Sex: Female

DRUGS (13)
  1. SEROPLEX [Concomitant]
     Active Substance: ESCITALOPRAM OXALATE
  2. MAGNESIUM [Concomitant]
     Active Substance: MAGNESIUM
  3. COUMADINE [Suspect]
     Active Substance: WARFARIN SODIUM
     Dates: start: 20131108, end: 20131108
  4. INEXIUM [Concomitant]
     Active Substance: ESOMEPRAZOLE
  5. CREON [Concomitant]
     Active Substance: PANCRELIPASE AMYLASE\PANCRELIPASE LIPASE\PANCRELIPASE PROTEASE
  6. BISOPROLOL [Concomitant]
     Active Substance: BISOPROLOL
  7. HEMIGOXINE NATIVELLE [Concomitant]
     Active Substance: DIGOXIN
  8. KALEORID [Concomitant]
     Active Substance: POTASSIUM CHLORIDE
  9. VITAMIN D [Concomitant]
     Active Substance: CHOLECALCIFEROL
  10. BURINEX [Concomitant]
     Active Substance: BUMETANIDE
  11. NOCTAMIDE [Concomitant]
     Active Substance: LORMETAZEPAM
  12. SPASFON [Concomitant]
     Active Substance: PHLOROGLUCINOL
  13. TRAMADOL [Concomitant]
     Active Substance: TRAMADOL

REACTIONS (3)
  - Haemorrhage [Unknown]
  - Fall [Recovered/Resolved]
  - Head injury [Unknown]

NARRATIVE: CASE EVENT DATE: 20131108
